APPROVED DRUG PRODUCT: SULFADIAZINE
Active Ingredient: SULFADIAZINE
Strength: 500MG
Dosage Form/Route: TABLET;ORAL
Application: A040091 | Product #001
Applicant: EPIC PHARMA LLC
Approved: Jul 29, 1994 | RLD: No | RS: Yes | Type: RX